FAERS Safety Report 24050784 (Version 2)
Quarter: 2024Q3

REPORT INFORMATION
  Report Type: Spontaneous
  Country: JP (occurrence: JP)
  Receive Date: 20240704
  Receipt Date: 20240716
  Transmission Date: 20241016
  Serious: Yes (Other)
  Sender: JOHNSON AND JOHNSON
  Company Number: JP-MTPC-MTPC2024-0013670

PATIENT
  Age: 85 Year
  Sex: Male

DRUGS (6)
  1. REMICADE [Suspect]
     Active Substance: INFLIXIMAB
     Indication: Pustular psoriasis
     Dosage: 5 MILLIGRAM/KILOGRAM, QD
     Route: 041
     Dates: start: 20140724
  2. REMICADE [Suspect]
     Active Substance: INFLIXIMAB
     Dosage: 5 MILLIGRAM/KILOGRAM, QD
     Route: 041
     Dates: start: 20240513, end: 20240513
  3. GLYCOSAMINOGLYCANS [Concomitant]
     Active Substance: GLYCOSAMINOGLYCANS
     Route: 061
  4. BETAMETHASONE SODIUM PHOSPHATE [Concomitant]
     Active Substance: BETAMETHASONE SODIUM PHOSPHATE
     Route: 065
  5. LOCOID [Concomitant]
     Active Substance: HYDROCORTISONE BUTYRATE
     Route: 065
  6. CALONAL [Concomitant]
     Active Substance: ACETAMINOPHEN
     Route: 065

REACTIONS (1)
  - Pancreatic carcinoma [Unknown]
